FAERS Safety Report 6201566 (Version 3)
Quarter: 2012Q4

REPORT INFORMATION
  Report Type: 
  Country: CA (occurrence: CA)
  Receive Date: 20061222
  Receipt Date: 20121003
  Transmission Date: 20130627
  Serious: Yes (Other)
  Sender: FDA-Public Use
  Company Number: CA-JNJFOC-20061204679

PATIENT
  Age: 7 None
  Sex: Female

DRUGS (1)
  1. CONCERTA [Suspect]
     Indication: ATTENTION DEFICIT/HYPERACTIVITY DISORDER
     Route: 048
     Dates: start: 200608, end: 200608

REACTIONS (4)
  - Stevens-Johnson syndrome [Recovered/Resolved]
  - Febrile convulsion [Recovered/Resolved]
  - Arthritis [Recovered/Resolved]
  - Conjunctivitis [Recovered/Resolved]
